FAERS Safety Report 8614954-0 (Version None)
Quarter: 2012Q3

REPORT INFORMATION
  Report Type: 
  Country: None (occurrence: None)
  Receive Date: 20120823
  Receipt Date: 20120814
  Transmission Date: 20120928
  Serious: Yes (Other)
  Sender: FDA-Public Use
  Company Number: US-INCYTE CORPORATION-2012IN001228

PATIENT
  Sex: Female

DRUGS (8)
  1. ALLOPURINOL [Concomitant]
  2. VITAMIN TAB [Concomitant]
  3. PLAQUENIL [Concomitant]
  4. OSTEO BI-FLEX [Concomitant]
  5. ASPIRIN [Concomitant]
     Dosage: 81 MG, UNK
  6. PREVACID [Concomitant]
  7. JAKAFI [Suspect]
     Indication: MYELOFIBROSIS
     Dosage: 10 MG, BID
     Route: 048
     Dates: start: 20120216, end: 20120101
  8. JAKAFI [Suspect]
     Indication: POLYCYTHAEMIA VERA
     Dosage: 20 MG, BID
     Dates: start: 20120101, end: 20120101

REACTIONS (2)
  - HEPATIC ENZYME INCREASED [None]
  - PANCYTOPENIA [None]
